FAERS Safety Report 8870884 (Version 2)
Quarter: 2012Q4

REPORT INFORMATION
  Report Type: 
  Country: JP (occurrence: JP)
  Receive Date: 20121026
  Receipt Date: 20121126
  Transmission Date: 20130627
  Serious: Yes (Other)
  Sender: FDA-Public Use
  Company Number: JP-ASTRAZENECA-2012SE80413

PATIENT
  Age: 80 Year
  Sex: Male

DRUGS (2)
  1. ANAPEINE [Suspect]
     Indication: NERVE BLOCK
     Route: 053
  2. PROPOFOL [Concomitant]
     Indication: SEDATION
     Dosage: 3 mg/kg/hr
     Route: 065

REACTIONS (1)
  - Therapeutic response prolonged [Recovered/Resolved]
